FAERS Safety Report 5191973-0 (Version None)
Quarter: 2006Q4

REPORT INFORMATION
  Report Type: 
  Country: None (occurrence: None)
  Receive Date: 20061227
  Receipt Date: 20061214
  Transmission Date: 20070319
  Serious: Yes (Hospitalization)
  Sender: FDA-Public Use
  Company Number: US-AMGEN-STX203777

PATIENT
  Sex: Female

DRUGS (1)
  1. ENBREL [Suspect]
     Indication: RHEUMATOID ARTHRITIS
     Route: 058
     Dates: start: 20000401

REACTIONS (7)
  - BACK PAIN [None]
  - FALL [None]
  - GINGIVAL INFECTION [None]
  - LIMB INJURY [None]
  - PAIN IN EXTREMITY [None]
  - ULCER HAEMORRHAGE [None]
  - VAGINAL INFECTION [None]
